FAERS Safety Report 8487836-5 (Version None)
Quarter: 2012Q3

REPORT INFORMATION
  Report Type: 
  Country: None (occurrence: None)
  Receive Date: 20120705
  Receipt Date: 20120627
  Transmission Date: 20120928
  Serious: Yes (Other)
  Sender: FDA-Public Use
  Company Number: JP-PFIZER INC-2012153682

PATIENT
  Age: 4 Year
  Sex: Male

DRUGS (3)
  1. GENOTROPIN [Suspect]
     Dosage: 0.6 MG, UNK
     Dates: start: 20120622
  2. GENOTROPIN [Suspect]
     Dosage: 0.75 MG, UNK
  3. GENOTROPIN [Suspect]
     Indication: PRADER-WILLI SYNDROME
     Dosage: UNK
     Route: 058

REACTIONS (1)
  - FEBRILE CONVULSION [None]
